FAERS Safety Report 18951765 (Version 2)
Quarter: 2021Q1

REPORT INFORMATION
  Report Type: Spontaneous
  Country: US (occurrence: US)
  Receive Date: 20210301
  Receipt Date: 20210318
  Transmission Date: 20210420
  Serious: No
  Sender: FDA-Public Use
  Company Number: US-ELI_LILLY_AND_COMPANY-US202102011182

PATIENT
  Sex: Female

DRUGS (13)
  1. BASAGLAR [Suspect]
     Active Substance: INSULIN GLARGINE
     Dosage: 18 U, DAILY (AT NIGHT)
     Route: 065
  2. BASAGLAR [Suspect]
     Active Substance: INSULIN GLARGINE
     Dosage: 18 U, DAILY (AT NIGHT)
     Route: 065
     Dates: end: 202101
  3. HUMALOG [Suspect]
     Active Substance: INSULIN LISPRO
     Dosage: 9 U, OTHER (PER MEAL)
     Route: 058
  4. HUMALOG [Suspect]
     Active Substance: INSULIN LISPRO
     Indication: DIABETES MELLITUS
     Dosage: 9 U, OTHER (PER MEAL)
     Route: 058
     Dates: start: 2019
  5. BASAGLAR [Suspect]
     Active Substance: INSULIN GLARGINE
     Indication: DIABETES MELLITUS
     Dosage: 18 U, DAILY (AT NIGHT)
     Route: 065
     Dates: start: 2019
  6. BASAGLAR [Suspect]
     Active Substance: INSULIN GLARGINE
     Indication: DIABETES MELLITUS
     Dosage: 18 U, DAILY (AT NIGHT)
     Route: 065
     Dates: start: 2019
  7. HUMALOG [Suspect]
     Active Substance: INSULIN LISPRO
     Dosage: 9 U, OTHER (PER MEAL)
     Route: 058
  8. LANTUS [Concomitant]
     Active Substance: INSULIN GLARGINE
     Indication: DIABETES MELLITUS
     Dosage: UNK
     Dates: start: 202101
  9. BASAGLAR [Suspect]
     Active Substance: INSULIN GLARGINE
     Indication: DIABETES MELLITUS
     Dosage: 18 U, DAILY (AT NIGHT)
     Route: 065
     Dates: start: 2019
  10. BASAGLAR [Suspect]
     Active Substance: INSULIN GLARGINE
     Dosage: 18 U, DAILY (AT NIGHT)
     Route: 065
  11. BASAGLAR [Suspect]
     Active Substance: INSULIN GLARGINE
     Dosage: 18 U, DAILY (AT NIGHT)
     Route: 065
     Dates: end: 202101
  12. HUMALOG [Suspect]
     Active Substance: INSULIN LISPRO
     Indication: DIABETES MELLITUS
     Dosage: 9 U, OTHER (PER MEAL)
     Route: 058
     Dates: start: 2019
  13. HUMALOG [Suspect]
     Active Substance: INSULIN LISPRO
     Dosage: 9 U, OTHER (PER MEAL)
     Route: 058

REACTIONS (2)
  - Osteopenia [Unknown]
  - Spinal osteoarthritis [Unknown]
